FAERS Safety Report 4549363-7 (Version None)
Quarter: 2005Q1

REPORT INFORMATION
  Report Type: 
  Country: None (occurrence: None)
  Receive Date: 20050106
  Receipt Date: 20041220
  Transmission Date: 20050727
  Serious: Yes (Hospitalization)
  Sender: FDA-Public Use
  Company Number: GBS010108155

PATIENT
  Age: 72 Year
  Sex: Female

DRUGS (8)
  1. FLUOXETINE HYDROCHLORIDE [Suspect]
     Indication: DEPRESSION
     Dosage: 20 MG/1 DAY
     Dates: end: 20000930
  2. MADOPAR [Concomitant]
  3. IRON [Concomitant]
  4. THYROXINE [Concomitant]
  5. CO-BENELDOPA [Concomitant]
  6. CALCICHEW D3 [Concomitant]
  7. TEMAZEPAM [Concomitant]
  8. ACETAMINOPHEN [Concomitant]

REACTIONS (5)
  - BLOOD PRESSURE DIASTOLIC DECREASED [None]
  - FALL [None]
  - HYPONATRAEMIA [None]
  - NORMAL PRESSURE HYDROCEPHALUS [None]
  - URINARY RETENTION [None]
